FAERS Safety Report 15992723 (Version 6)
Quarter: 2021Q2

REPORT INFORMATION
  Report Type: Report from Study
  Country: GB (occurrence: GB)
  Receive Date: 20190221
  Receipt Date: 20210519
  Transmission Date: 20210716
  Serious: Yes (Death, Hospitalization, Other)
  Sender: FDA-Public Use
  Company Number: GB-PFIZER INC-2018216445

PATIENT
  Age: 60 Year
  Sex: Female

DRUGS (35)
  1. RANITIDINE. [Concomitant]
     Active Substance: RANITIDINE
     Dosage: 50 MG, WEEKLY
     Route: 042
     Dates: start: 20150908, end: 20151215
  2. CHLORPHENAMINE [Concomitant]
     Active Substance: CHLORPHENIRAMINE MALEATE
     Dosage: 10 MG, WEEKLY
     Route: 042
     Dates: start: 20150908, end: 20151215
  3. HYDROCORTISONE. [Concomitant]
     Active Substance: HYDROCORTISONE
     Dosage: 100 MG, WEEKLY
     Route: 042
     Dates: start: 20160906, end: 20160906
  4. EPIRUBICIN HCL [Suspect]
     Active Substance: EPIRUBICIN HYDROCHLORIDE
     Indication: HER2 POSITIVE BREAST CANCER
     Dosage: 50 MG, WEEKLY
     Route: 042
     Dates: start: 20160823, end: 20160830
  5. ENALAPRIL [Concomitant]
     Active Substance: ENALAPRIL
     Dosage: 10 MG, 1X/DAY
     Route: 048
     Dates: start: 20060823, end: 20160925
  6. RANITIDINE. [Concomitant]
     Active Substance: RANITIDINE
     Dosage: 50 MG, WEEKLY
     Route: 042
     Dates: start: 20160906, end: 20160906
  7. ACICLOVIR [Concomitant]
     Active Substance: ACYCLOVIR
     Dosage: 5 %, 5X/DAY
     Route: 061
     Dates: start: 20160913, end: 20160925
  8. CHLORHEXIDINE GLUCONATE. [Concomitant]
     Active Substance: CHLORHEXIDINE GLUCONATE
     Dosage: 10 ML, 2X/DAY (EVERY 0.5 DAYS)
     Dates: start: 20160913, end: 20160925
  9. TRASTUZUMAB/VORHYALURONIDASE ALFA [Suspect]
     Active Substance: HYALURONIDASE (HUMAN RECOMBINANT)\TRASTUZUMAB
     Indication: HER2 POSITIVE BREAST CANCER
     Dosage: 600 MG, EVERY 3 WEEKS
     Route: 058
     Dates: start: 20151124, end: 20160802
  10. CO?AMOXICLAV [AMOXICILLIN SODIUM;CLAVULANATE POTASSIUM] [Concomitant]
     Active Substance: AMOXICILLIN\CLAVULANATE POTASSIUM
     Dosage: 500/125 MG, EVERY 0.33DAY
     Route: 048
     Dates: start: 20150922, end: 20151004
  11. DEXAMETHASONE. [Concomitant]
     Active Substance: DEXAMETHASONE
     Dosage: 8 MG, WEEKLY
     Route: 042
     Dates: start: 20150908, end: 20151215
  12. PACLITAXEL. [Suspect]
     Active Substance: PACLITAXEL
     Indication: HER2 POSITIVE BREAST CANCER
     Dosage: 141 MG, WEEKLY
     Route: 042
     Dates: start: 20150901, end: 20151006
  13. ONDANSETRON [Concomitant]
     Active Substance: ONDANSETRON
     Dosage: 8 MG, WEEKLY
     Route: 048
     Dates: start: 20151006, end: 20151215
  14. GENTAMYCIN [Concomitant]
     Active Substance: GENTAMICIN
     Dosage: 320 MG, 1X/DAY
     Route: 042
     Dates: start: 20160825, end: 20160827
  15. PACLITAXEL. [Suspect]
     Active Substance: PACLITAXEL
     Dosage: 111 MG, WEEKLY (PLANNED NUMBER OF CYCLES COMPLETED)
     Route: 042
     Dates: start: 20151006, end: 20151215
  16. CHLORPHENAMINE [Concomitant]
     Active Substance: CHLORPHENIRAMINE MALEATE
     Dosage: 10 MG, WEEKLY
     Route: 042
     Dates: start: 20160906, end: 20160906
  17. DEXPANTHENOL. [Concomitant]
     Active Substance: DEXPANTHENOL
     Dosage: UNK
     Route: 061
     Dates: start: 20160913, end: 20160914
  18. HYALURONIDASE [Suspect]
     Active Substance: HYALURONIDASE
     Indication: HER2 POSITIVE BREAST CANCER
     Dosage: 600 MG, EVERY 3 WEEKS
     Route: 058
     Dates: start: 20151124, end: 20160802
  19. IBUPROFEN. [Concomitant]
     Active Substance: IBUPROFEN
     Dosage: UNK
     Route: 065
     Dates: start: 20160925, end: 20160925
  20. OMEPRAZOLE. [Concomitant]
     Active Substance: OMEPRAZOLE
     Dosage: 20 MG, 1X/DAY
     Route: 048
     Dates: end: 20160106
  21. METOCLOPRAMIDE. [Concomitant]
     Active Substance: METOCLOPRAMIDE
     Dosage: 10 MG, UNK
     Route: 048
     Dates: start: 20150908, end: 20151215
  22. METOCLOPRAMIDE. [Concomitant]
     Active Substance: METOCLOPRAMIDE
     Dosage: 10 MG, UNK
     Route: 048
     Dates: start: 20160823, end: 20160906
  23. ONDANSETRON [Concomitant]
     Active Substance: ONDANSETRON
     Dosage: 8 MG, WEEKLY
     Route: 048
     Dates: start: 20160823, end: 20160906
  24. PEPTAC [CALCIUM CARBONATE;SODIUM ALGINATE;SODIUM BICARBONATE] [Concomitant]
     Dosage: 10 ML
     Route: 048
     Dates: end: 20160106
  25. PACLITAXEL. [Suspect]
     Active Substance: PACLITAXEL
     Dosage: 84 MG, WEEKLY
     Route: 042
     Dates: start: 20160906, end: 20160906
  26. PARACETAMOL [Concomitant]
     Active Substance: ACETAMINOPHEN
     Dosage: 500 MG, 4X/DAY
     Route: 048
     Dates: end: 20160925
  27. ENOXAPARIN [Concomitant]
     Active Substance: ENOXAPARIN
     Dosage: UNK
     Route: 058
     Dates: start: 20160817, end: 20160913
  28. DEXAMETHASONE. [Concomitant]
     Active Substance: DEXAMETHASONE
     Dosage: 8 MG, WEEKLY
     Route: 042
     Dates: start: 20160823, end: 20160906
  29. BEPANTHEN [DEXPANTHENOL] [Concomitant]
     Active Substance: DEXPANTHENOL
     Dosage: UNK
     Route: 061
     Dates: start: 20160913, end: 20160914
  30. FLUCONAZOLE. [Concomitant]
     Active Substance: FLUCONAZOLE
     Dosage: 500 MG, 1X/DAY
     Route: 048
     Dates: start: 20160912, end: 20160912
  31. VANCOMYCIN [Concomitant]
     Active Substance: VANCOMYCIN
     Indication: NEUTROPENIA
     Dosage: 1500 MG, UNK
     Route: 042
     Dates: start: 20160912, end: 20160912
  32. VANCOMYCIN [Concomitant]
     Active Substance: VANCOMYCIN
     Dosage: UNK
     Route: 042
     Dates: start: 20160912, end: 20160913
  33. HYDROCORTISONE. [Concomitant]
     Active Substance: HYDROCORTISONE
     Dosage: UNK
     Route: 061
     Dates: start: 20160817, end: 20160913
  34. TAZOCIN [Concomitant]
     Active Substance: PIPERACILLIN SODIUM\TAZOBACTAM SODIUM
     Indication: NEUTROPENIA
     Dosage: 4.5 G, 4X/DAY
     Route: 042
     Dates: start: 20160911, end: 20160913
  35. FLUCONAZOLE. [Concomitant]
     Active Substance: FLUCONAZOLE
     Dosage: 50 MG, 1X/DAY
     Route: 048
     Dates: start: 20160908, end: 201609

REACTIONS (12)
  - Muscle strain [Recovered/Resolved]
  - Aspartate aminotransferase increased [Recovered/Resolved with Sequelae]
  - Ascites [Recovered/Resolved with Sequelae]
  - Condition aggravated [Recovered/Resolved with Sequelae]
  - Alanine aminotransferase increased [Recovered/Resolved with Sequelae]
  - Diarrhoea [Recovered/Resolved]
  - Neuropathy peripheral [Unknown]
  - White blood cell count decreased [Recovered/Resolved]
  - Nail infection [Unknown]
  - Blood bilirubin increased [Unknown]
  - Neutropenia [Recovered/Resolved with Sequelae]
  - Epigastric discomfort [Recovered/Resolved]

NARRATIVE: CASE EVENT DATE: 20160118
